FAERS Safety Report 7775953-4 (Version None)
Quarter: 2011Q3

REPORT INFORMATION
  Report Type: 
  Country: None (occurrence: None)
  Receive Date: 20110923
  Receipt Date: 20110914
  Transmission Date: 20111222
  Serious: Yes (Hospitalization, Other)
  Sender: FDA-Public Use
  Company Number: GB-MERCK-1108USA03329

PATIENT
  Age: 69 Year
  Sex: Female

DRUGS (9)
  1. METOCLOPRAMIDE [Concomitant]
     Route: 065
  2. OMEPRAZOLE [Concomitant]
     Route: 065
  3. VELCADE [Suspect]
     Indication: MULTIPLE MYELOMA
     Route: 065
  4. CLODRONATE DISODIUM [Concomitant]
     Route: 065
  5. CITALOPRAM [Concomitant]
     Route: 065
  6. DECADRON [Suspect]
     Indication: MULTIPLE MYELOMA
     Route: 048
  7. ONDANSETRON [Concomitant]
     Route: 065
  8. BACLOFEN [Concomitant]
     Route: 065
  9. HALOPERIDOL [Concomitant]
     Route: 065

REACTIONS (2)
  - PSYCHOTIC DISORDER [None]
  - RENAL FAILURE ACUTE [None]
